FAERS Safety Report 8852700 (Version 4)
Quarter: 2014Q2

REPORT INFORMATION
  Report Type: Report from Study
  Country: US (occurrence: US)
  Receive Date: 20121022
  Receipt Date: 20140630
  Transmission Date: 20141212
  Serious: Yes (Hospitalization)
  Sender: FDA-Public Use
  Company Number: US-ACTELION-A-NJ2012-73084

PATIENT
  Age: 55 Year
  Sex: Female

DRUGS (5)
  1. TRACLEER [Suspect]
     Indication: PULMONARY ARTERIAL HYPERTENSION
     Dosage: UNK
     Route: 048
  2. VENTAVIS [Suspect]
     Indication: PULMONARY ARTERIAL HYPERTENSION
     Dosage: UNK
     Route: 055
  3. ASPIRIN [Concomitant]
  4. HYDRALAZINE [Concomitant]
  5. PLAVIX [Concomitant]

REACTIONS (6)
  - Coronary arterial stent insertion [Unknown]
  - Cardiac disorder [Unknown]
  - Lung disorder [Unknown]
  - Diabetes mellitus [Unknown]
  - Blood pressure increased [Unknown]
  - Nasopharyngitis [Unknown]
